FAERS Safety Report 21425677 (Version 1)
Quarter: 2022Q4

REPORT INFORMATION
  Report Type: Spontaneous
  Country: US (occurrence: US)
  Receive Date: 20221008
  Receipt Date: 20221008
  Transmission Date: 20230112
  Serious: Yes (Other)
  Sender: FDA-Public Use
  Company Number: US-drreddys-SPO/USA/22/0155293

PATIENT
  Age: 13 Year
  Sex: Female

DRUGS (2)
  1. ZENATANE [Suspect]
     Active Substance: ISOTRETINOIN
     Indication: Product used for unknown indication
     Dosage: RMA ISSUE DATE: 17 MAY 2022 05:07:44 PM, 24 JUNE 2022 07:04:29 PM AND 30 AUGUST 2022 04:32:08 PM
  2. ZENATANE [Suspect]
     Active Substance: ISOTRETINOIN
     Dosage: RMA ISSUE DATE: 28 JULY 2022 04:17:56 PM

REACTIONS (2)
  - Haematochezia [Unknown]
  - Abdominal pain [Unknown]
